FAERS Safety Report 9700080 (Version 2)
Quarter: 2013Q4

REPORT INFORMATION
  Report Type: Report from Study
  Country: BR (occurrence: BR)
  Receive Date: 20131121
  Receipt Date: 20131121
  Transmission Date: 20140711
  Serious: Yes (Disabling)
  Sender: FDA-Public Use
  Company Number: BR-ROCHE-1200009

PATIENT
  Sex: Male
  Weight: 85 kg

DRUGS (2)
  1. MABTHERA [Suspect]
     Indication: GLOMERULONEPHRITIS
     Route: 065
     Dates: start: 20100701
  2. PARACETAMOL [Concomitant]
     Indication: PREMEDICATION

REACTIONS (2)
  - Movement disorder [Recovered/Resolved]
  - Tooth fracture [Not Recovered/Not Resolved]
